FAERS Safety Report 9531280 (Version 1)
Quarter: 2013Q3

REPORT INFORMATION
  Report Type: Spontaneous
  Country: US (occurrence: None)
  Receive Date: 20130916
  Receipt Date: 20130916
  Transmission Date: 20140515
  Serious: Yes (Disabling)
  Sender: FDA-Public Use
  Company Number: None

PATIENT
  Age: 71 Year
  Sex: Female
  Weight: 72.58 kg

DRUGS (1)
  1. NEUPRO [Suspect]
     Dosage: 1 PATCH @ 7P.M. ONCE DAILY.  APPLIED AS MEDICATED PATCH TO SKIN
     Dates: start: 20130908, end: 20130909

REACTIONS (2)
  - Hypersensitivity [None]
  - Blood pressure increased [None]
